FAERS Safety Report 8504539-9 (Version None)
Quarter: 2012Q3

REPORT INFORMATION
  Report Type: 
  Country: None (occurrence: None)
  Receive Date: 20120711
  Receipt Date: 20120705
  Transmission Date: 20120928
  Serious: Yes (Other)
  Sender: FDA-Public Use
  Company Number: JP-JNJFOC-20110812948

PATIENT
  Age: 54 Year
  Sex: Male
  Weight: 53 kg

DRUGS (21)
  1. REMICADE [Suspect]
     Dosage: 3RD DOSE
     Route: 042
     Dates: start: 20100917
  2. ZOLPIDEM [Concomitant]
     Indication: INSOMNIA
     Route: 048
  3. OLOPATADINE HCL [Concomitant]
     Indication: PSORIATIC ARTHROPATHY
     Route: 048
  4. PREDNISOLONE [Concomitant]
     Indication: PSORIATIC ARTHROPATHY
     Route: 048
     Dates: start: 20100820
  5. INBESTAN [Concomitant]
     Indication: PSORIATIC ARTHROPATHY
     Route: 048
  6. RHYTHMY [Concomitant]
     Indication: INSOMNIA
     Dates: start: 20101126
  7. METHOTREXATE [Concomitant]
     Indication: PSORIATIC ARTHROPATHY
     Route: 048
     Dates: start: 20100827, end: 20101008
  8. REMICADE [Suspect]
     Indication: PSORIATIC ARTHROPATHY
     Dosage: 1ST DOSE
     Route: 042
     Dates: start: 20100705
  9. MAGMITT [Concomitant]
     Indication: CONSTIPATION
     Route: 048
     Dates: start: 20100730
  10. FOIPAN [Concomitant]
     Indication: PANCREATITIS CHRONIC
     Route: 048
     Dates: start: 20100924
  11. BETAMETHASONE SODIUM PHOSPHATE [Concomitant]
     Indication: PSORIATIC ARTHROPATHY
     Route: 003
  12. ISONIAZID [Concomitant]
     Indication: ANTIBIOTIC PROPHYLAXIS
     Dates: start: 20100712
  13. REMICADE [Suspect]
     Route: 042
     Dates: start: 20110214
  14. ROHYPNOL [Concomitant]
     Indication: INSOMNIA
     Route: 048
     Dates: start: 20100722
  15. CLOBETASOL PROPIONATE [Concomitant]
     Indication: PSORIATIC ARTHROPATHY
     Route: 003
  16. SEPAZON [Concomitant]
     Indication: PSYCHOSOMATIC DISEASE
     Route: 048
     Dates: start: 20100722
  17. LOXONIN [Concomitant]
  18. REMICADE [Suspect]
     Route: 042
     Dates: start: 20100816
  19. REMICADE [Suspect]
     Dosage: 4TH DOSE
     Route: 042
     Dates: start: 20101206
  20. OMEPRAZOLE [Concomitant]
     Indication: GASTRIC ULCER
     Route: 048
     Dates: start: 20100927
  21. ASPIRIN [Concomitant]
     Indication: PSORIATIC ARTHROPATHY
     Route: 003

REACTIONS (2)
  - ANAEMIA [None]
  - PANCREATITIS CHRONIC [None]
